FAERS Safety Report 18970591 (Version 1)
Quarter: 2021Q1

REPORT INFORMATION
  Report Type: Spontaneous
  Country: DE (occurrence: DE)
  Receive Date: 20210304
  Receipt Date: 20210304
  Transmission Date: 20210420
  Serious: Yes (Death, Other)
  Sender: FDA-Public Use
  Company Number: DE-ELI_LILLY_AND_COMPANY-DE202103000989

PATIENT
  Age: 72 Year
  Sex: Female

DRUGS (1)
  1. BAMLANIVIMAB. [Suspect]
     Active Substance: BAMLANIVIMAB
     Indication: COVID-19
     Dosage: 700 MG, SINGLE
     Route: 042
     Dates: start: 20210205, end: 20210205

REACTIONS (4)
  - Drug ineffective [Fatal]
  - COVID-19 pneumonia [Unknown]
  - Candida infection [Unknown]
  - Respiratory failure [Fatal]

NARRATIVE: CASE EVENT DATE: 20210224
